FAERS Safety Report 18559509 (Version 1)
Quarter: 2020Q4

REPORT INFORMATION
  Report Type: Report from Study
  Country: IN (occurrence: IN)
  Receive Date: 20201130
  Receipt Date: 20201130
  Transmission Date: 20210114
  Serious: Yes (Other)
  Sender: FDA-Public Use
  Company Number: IN-MYLANLABS-2020M1097363

PATIENT
  Age: 15 Year
  Sex: Male

DRUGS (4)
  1. DEXAMETHASONE. [Suspect]
     Active Substance: DEXAMETHASONE
     Indication: PRECURSOR T-LYMPHOBLASTIC LEUKAEMIA ACUTE
     Dosage: 10 MILLIGRAM/SQ. METER, QD DURING..
     Route: 048
  2. DOXORUBICIN [Suspect]
     Active Substance: DOXORUBICIN
     Indication: PRECURSOR T-LYMPHOBLASTIC LEUKAEMIA ACUTE
     Dosage: 30 MILLIGRAM/SQ. METER, QW FOR 4 WEEKS...
     Route: 042
  3. VINCRISTINE [Suspect]
     Active Substance: VINCRISTINE
     Indication: PRECURSOR T-LYMPHOBLASTIC LEUKAEMIA ACUTE
     Dosage: 1.5 MILLIGRAM/SQ. METER, QW FOR 4 WEEKS..
     Route: 042
  4. L ASPARAGINASE [Suspect]
     Active Substance: ASPARAGINASE
     Indication: PRECURSOR T-LYMPHOBLASTIC LEUKAEMIA ACUTE
     Dosage: FOUR DOSES OF 10000 U/M 2 DURING?.
     Route: 042

REACTIONS (2)
  - Postictal paralysis [Recovered/Resolved]
  - Cerebral venous sinus thrombosis [Recovered/Resolved]
